FAERS Safety Report 18216579 (Version 1)
Quarter: 2020Q3

REPORT INFORMATION
  Report Type: Report from Study
  Country: None (occurrence: US)
  Receive Date: 20200901
  Receipt Date: 20200901
  Transmission Date: 20201103
  Serious: Yes (Other)
  Sender: FDA-Public Use
  Company Number: US-ABBVIE-18K-163-3123910-00

PATIENT
  Age: 62 Year
  Sex: Female

DRUGS (3)
  1. IMBRUVICA [Suspect]
     Active Substance: IBRUTINIB
     Route: 048
     Dates: start: 20181030
  2. VITAMIN D [Concomitant]
     Active Substance: VITAMIN D NOS
     Indication: PRODUCT USED FOR UNKNOWN INDICATION
     Dosage: 2000 UNIT, UNK
  3. IMBRUVICA [Suspect]
     Active Substance: IBRUTINIB
     Indication: B-CELL SMALL LYMPHOCYTIC LYMPHOMA
     Dosage: 420 MG, QD
     Route: 048
     Dates: start: 20181030, end: 20190926

REACTIONS (16)
  - Eye disorder [Unknown]
  - Abdominal discomfort [Unknown]
  - Visual impairment [Not Recovered/Not Resolved]
  - Diarrhoea [Unknown]
  - Hot flush [Unknown]
  - Arthralgia [Not Recovered/Not Resolved]
  - Hangover [Unknown]
  - Radius fracture [Unknown]
  - Pain in extremity [Not Recovered/Not Resolved]
  - Heart rate irregular [Unknown]
  - Visual field defect [Unknown]
  - Dry eye [Not Recovered/Not Resolved]
  - Feeling abnormal [Unknown]
  - Fatigue [Unknown]
  - Headache [Unknown]
  - Vomiting [Unknown]

NARRATIVE: CASE EVENT DATE: 201810
